FAERS Safety Report 5786039-2 (Version None)
Quarter: 2008Q2

REPORT INFORMATION
  Report Type: 
  Country: None (occurrence: None)
  Receive Date: 20080620
  Receipt Date: 20080620
  Transmission Date: 20081010
  Serious: Yes (Hospitalization)
  Sender: FDA-Public Use
  Company Number: None

PATIENT
  Age: 81 Year

DRUGS (1)
  1. JANUVIA [Suspect]
     Dosage: 1 TABLET QDAY
     Dates: start: 20080509, end: 20080515

REACTIONS (1)
  - PANCREATITIS [None]
